FAERS Safety Report 9225002 (Version 1)
Quarter: 2013Q2

REPORT INFORMATION
  Report Type: Report from Study
  Country: US (occurrence: US)
  Receive Date: 20130411
  Receipt Date: 20130411
  Transmission Date: 20140414
  Serious: Yes (Other)
  Sender: FDA-Public Use
  Company Number: US-JNJFOC-20130307555

PATIENT
  Sex: 0

DRUGS (2)
  1. NUCYNTA [Suspect]
     Indication: PAIN
     Route: 048
  2. NUCYNTA [Suspect]
     Indication: PAIN
     Route: 048

REACTIONS (4)
  - Confusional state [Unknown]
  - Vertigo [Unknown]
  - Dizziness [Unknown]
  - Memory impairment [Unknown]
